FAERS Safety Report 7397133-7 (Version None)
Quarter: 2011Q2

REPORT INFORMATION
  Report Type: 
  Country: None (occurrence: None)
  Receive Date: 20110406
  Receipt Date: 20110328
  Transmission Date: 20111010
  Serious: Yes (Other)
  Sender: FDA-Public Use
  Company Number: B0680879A

PATIENT
  Age: 38 Year
  Sex: Male

DRUGS (4)
  1. BUPROPION HYDROCHLORIDE [Suspect]
     Route: 045
  2. OLANZAPINE [Concomitant]
  3. GLYBURIDE [Concomitant]
  4. METFORMIN [Concomitant]

REACTIONS (4)
  - GRAND MAL CONVULSION [None]
  - DRUG ABUSE [None]
  - CONVULSION [None]
  - INCORRECT ROUTE OF DRUG ADMINISTRATION [None]
